FAERS Safety Report 9990902 (Version 1)
Quarter: 2014Q1

REPORT INFORMATION
  Report Type: Report from Study
  Country: US (occurrence: US)
  Receive Date: 20140310
  Receipt Date: 20140310
  Transmission Date: 20141002
  Serious: No
  Sender: FDA-Public Use
  Company Number: US-ABBVIE-13P-163-1133282-00

PATIENT
  Age: 38 Year
  Sex: Female

DRUGS (6)
  1. HUMIRA [Suspect]
     Indication: CROHN^S DISEASE
     Dates: start: 20130709, end: 20130709
  2. HUMIRA [Suspect]
     Dates: start: 20130723, end: 20130723
  3. HUMIRA [Suspect]
     Dates: start: 20130806
  4. AMEROL [Concomitant]
     Indication: VITAMIN SUPPLEMENTATION
  5. PREDNISONE [Concomitant]
     Indication: CROHN^S DISEASE
     Dosage: 20 MG DAILY
  6. FLAGYL [Concomitant]
     Indication: CROHN^S DISEASE

REACTIONS (1)
  - Incorrect dose administered [Recovered/Resolved]
